FAERS Safety Report 18318576 (Version 1)
Quarter: 2020Q3

REPORT INFORMATION
  Report Type: Spontaneous
  Country: US (occurrence: US)
  Receive Date: 20200927
  Receipt Date: 20200927
  Transmission Date: 20201103
  Serious: Yes (Disabling)
  Sender: FDA-Public Use
  Company Number: None

PATIENT
  Age: 66 Year
  Sex: Female
  Weight: 116.1 kg

DRUGS (4)
  1. NATURE?THROID [Suspect]
     Active Substance: THYROID, PORCINE
     Indication: AUTOIMMUNE THYROIDITIS
     Dosage: ?          QUANTITY:90 TABLET(S);?
     Route: 048
     Dates: start: 20181115, end: 20200902
  2. MAGNESIUM [Concomitant]
     Active Substance: MAGNESIUM
  3. CPAP [Concomitant]
     Active Substance: DEVICE
  4. VITAMIN D [Concomitant]
     Active Substance: VITAMIN D NOS

REACTIONS (11)
  - Constipation [None]
  - Nausea [None]
  - Muscle discomfort [None]
  - Arthralgia [None]
  - Gait disturbance [None]
  - Weight increased [None]
  - Alopecia [None]
  - Insomnia [None]
  - Tremor [None]
  - Myalgia [None]
  - Weight decreased [None]
